FAERS Safety Report 12146748 (Version 1)
Quarter: 2016Q1

REPORT INFORMATION
  Report Type: Spontaneous
  Country: CA (occurrence: CA)
  Receive Date: 20160304
  Receipt Date: 20160304
  Transmission Date: 20160526
  Serious: Yes (Hospitalization)
  Sender: FDA-Public Use
  Company Number: CA-GLAXOSMITHKLINE-A1074235A

PATIENT
  Age: 42 Year
  Sex: Female
  Weight: 101 kg

DRUGS (1)
  1. BENLYSTA [Suspect]
     Active Substance: BELIMUMAB
     Indication: SYSTEMIC LUPUS ERYTHEMATOSUS
     Dosage: INFUSIONS AT WEEK 0, 2 AND 4 AND THEN EVERY 4 WEEKS
     Route: 042
     Dates: start: 20130516

REACTIONS (4)
  - Infection [Unknown]
  - Fungal infection [Recovered/Resolved]
  - Underdose [Unknown]
  - Back pain [Unknown]

NARRATIVE: CASE EVENT DATE: 20140520
